FAERS Safety Report 23304534 (Version 1)
Quarter: 2023Q4

REPORT INFORMATION
  Report Type: Report from Study
  Country: AT (occurrence: AT)
  Receive Date: 20231218
  Receipt Date: 20231218
  Transmission Date: 20240110
  Serious: Yes (Death, Other)
  Sender: FDA-Public Use
  Company Number: AT-JNJFOC-20231226082

PATIENT
  Sex: Male

DRUGS (2)
  1. ABIRATERONE ACETATE [Suspect]
     Active Substance: ABIRATERONE ACETATE
     Indication: Hormone-dependent prostate cancer
     Route: 048
  2. DOCETAXEL [Suspect]
     Active Substance: DOCETAXEL\DOCETAXEL ANHYDROUS
     Indication: Hormone-dependent prostate cancer
     Route: 065

REACTIONS (32)
  - Multiple organ dysfunction syndrome [Fatal]
  - Candida endophthalmitis [Unknown]
  - Sepsis [Unknown]
  - Neutropenia [Unknown]
  - Febrile neutropenia [Unknown]
  - Hypokalaemia [Unknown]
  - Polyneuropathy [Unknown]
  - Cardiac failure [Unknown]
  - Adrenal insufficiency [Unknown]
  - Cerebrovascular accident [Unknown]
  - Pneumonitis [Unknown]
  - Pneumonia [Unknown]
  - Fatigue [Unknown]
  - Oedema peripheral [Unknown]
  - Rash [Unknown]
  - Palmar-plantar erythrodysaesthesia syndrome [Unknown]
  - Pruritus [Unknown]
  - Stomatitis [Unknown]
  - Alopecia [Unknown]
  - Nail pigmentation [Unknown]
  - Hypersensitivity [Unknown]
  - Bronchitis [Unknown]
  - Infection [Unknown]
  - Headache [Unknown]
  - Taste disorder [Unknown]
  - Sleep disorder [Unknown]
  - Anxiety [Unknown]
  - Dizziness [Unknown]
  - Restless legs syndrome [Unknown]
  - Nausea [Unknown]
  - Diarrhoea [Unknown]
  - Hypertransaminasaemia [Unknown]
